FAERS Safety Report 9551374 (Version 1)
Quarter: 2013Q3

REPORT INFORMATION
  Report Type: Spontaneous
  Country: US (occurrence: None)
  Receive Date: 20130724
  Receipt Date: 20130724
  Transmission Date: 20140515
  Serious: Yes (Hospitalization)
  Sender: FDA-Public Use
  Company Number: PHEH2012US017870

PATIENT
  Age: 60 Year
  Sex: Male

DRUGS (2)
  1. GLEEVEC (IMATINIB) UNKNOWN [Suspect]
     Indication: PULMONARY ARTERIAL HYPERTENSION
     Route: 048
  2. RED BLOOD CELLS , CONCENTRATED (RED BLOOD CELLS, CONCENTRATED) [Concomitant]

REACTIONS (1)
  - Fatigue [None]
